FAERS Safety Report 10134178 (Version 1)
Quarter: 2014Q2

REPORT INFORMATION
  Report Type: Spontaneous
  Country: US (occurrence: US)
  Receive Date: 20140428
  Receipt Date: 20140428
  Transmission Date: 20141212
  Serious: No
  Sender: FDA-Public Use
  Company Number: US-SANOFI-AVENTIS-2013SA076023

PATIENT
  Sex: Female

DRUGS (2)
  1. ALLEGRA [Suspect]
     Indication: COUGH
     Dosage: FREQUENCY - ONCE A DAY OR BID DEPENDING ON HER SYMPTOMS.
     Route: 048
  2. ALLEGRA [Suspect]
     Indication: HEADACHE
     Dosage: FREQUENCY - ONCE A DAY OR BID DEPENDING ON HER SYMPTOMS.
     Route: 048

REACTIONS (2)
  - Headache [Unknown]
  - Inappropriate schedule of drug administration [Unknown]
